FAERS Safety Report 8757625 (Version 1)
Quarter: 2012Q4

REPORT INFORMATION
  Report Type: 
  Country: SA (occurrence: SA)
  Receive Date: 20120828
  Receipt Date: 20120828
  Transmission Date: 20130627
  Serious: Yes (Hospitalization)
  Sender: FDA-Public Use
  Company Number: PHHY2012SA072789

PATIENT
  Age: 31 Year
  Sex: Female

DRUGS (7)
  1. ISONIAZID [Suspect]
     Indication: TUBERCULOSIS
     Dosage: 200 mg, QD
  2. RIFAMPICIN [Suspect]
     Indication: TUBERCULOSIS
     Dosage: 450 mg, QD
  3. ETHAMBUTOL [Suspect]
     Indication: TUBERCULOSIS
     Dosage: 600 mg, QD
  4. PYRAZINAMIDE [Suspect]
     Indication: TUBERCULOSIS
     Dosage: 1250 mg, QD
  5. METHYLPREDNISOLONE [Concomitant]
     Dosage: 40 mg, Q12H
     Route: 042
  6. PANTOPRAZOLE [Concomitant]
     Dosage: 20 mg, UNK
  7. PARACETAMOL [Concomitant]
     Dosage: 2 DF, Q8H

REACTIONS (7)
  - Paradoxical drug reaction [Recovering/Resolving]
  - Sensation of heaviness [Recovering/Resolving]
  - Gait disturbance [Recovering/Resolving]
  - Paraparesis [Recovering/Resolving]
  - Ataxia [Recovering/Resolving]
  - Pyrexia [Recovered/Resolved]
  - Tuberculoma of central nervous system [Recovering/Resolving]
